FAERS Safety Report 5264983-2 (Version None)
Quarter: 2007Q1

REPORT INFORMATION
  Report Type: 
  Country: None (occurrence: None)
  Receive Date: 20070314
  Receipt Date: 20070305
  Transmission Date: 20070707
  Serious: Yes (Other)
  Sender: FDA-Public Use
  Company Number: CN-ROCHE-485872

PATIENT
  Age: 69 Year
  Sex: Male

DRUGS (1)
  1. XELODA [Suspect]
     Indication: SMALL INTESTINE CARCINOMA
     Route: 048

REACTIONS (1)
  - CEREBRAL INFARCTION [None]
